FAERS Safety Report 5223175-3 (Version None)
Quarter: 2007Q1

REPORT INFORMATION
  Report Type: 
  Country: None (occurrence: None)
  Receive Date: 20070129
  Receipt Date: 20070118
  Transmission Date: 20070707
  Serious: Yes (Hospitalization)
  Sender: FDA-Public Use
  Company Number: FR-PFIZER INC-2007006518

PATIENT
  Age: 71 Year
  Sex: Male

DRUGS (11)
  1. CETIRIZINE HCL [Suspect]
     Route: 048
     Dates: start: 20060807, end: 20060823
  2. TRAMADOL HCL [Suspect]
     Route: 048
     Dates: start: 20060807, end: 20060823
  3. OXAZEPAM [Suspect]
     Route: 048
     Dates: start: 20060807, end: 20060823
  4. ENALAPRIL MALEATE [Concomitant]
     Route: 048
  5. FLUINDIONE [Concomitant]
     Route: 048
  6. AMIODARONE HYDROCHLORIDE [Concomitant]
  7. ACARBOSE [Concomitant]
     Route: 048
  8. FINASTERIDE [Concomitant]
     Route: 048
  9. PANTOPRAZOLE SODIUM [Concomitant]
  10. POTASSIUM CHLORIDE [Concomitant]
     Route: 048
  11. FERROUS SULFATE TAB [Concomitant]
     Route: 048

REACTIONS (2)
  - LEUKOPENIA [None]
  - NEUTROPENIA [None]
